FAERS Safety Report 7783794-7 (Version None)
Quarter: 2011Q3

REPORT INFORMATION
  Report Type: 
  Country: None (occurrence: None)
  Receive Date: 20110928
  Receipt Date: 20110525
  Transmission Date: 20111222
  Serious: No
  Sender: FDA-Public Use
  Company Number: US-BAYER-2011-047084

PATIENT
  Age: 63 Year
  Sex: Female
  Weight: 75 kg

DRUGS (3)
  1. ALEVE (CAPLET) [Suspect]
     Dosage: 1 U, BID
     Route: 048
     Dates: start: 20110524, end: 20110524
  2. ALEVE (CAPLET) [Suspect]
     Dosage: 2 U, ONCE
     Route: 048
     Dates: start: 20110525, end: 20110525
  3. CENTRUM SILVER [Concomitant]

REACTIONS (1)
  - DRUG INEFFECTIVE [None]
